FAERS Safety Report 9346863 (Version 2)
Quarter: 2013Q3

REPORT INFORMATION
  Report Type: Spontaneous
  Country: FR (occurrence: FR)
  Receive Date: 20130613
  Receipt Date: 20130710
  Transmission Date: 20140515
  Serious: Yes (Death, Hospitalization, Other)
  Sender: FDA-Public Use
  Company Number: FR-TEVA-412206ISR

PATIENT
  Sex: Male

DRUGS (2)
  1. FUROSEMIDE TEVA 40 MG [Suspect]
     Dosage: 60 MILLIGRAM DAILY;
     Route: 048
  2. FUROSEMIDE 20 MG [Concomitant]

REACTIONS (2)
  - Pulmonary fibrosis [Unknown]
  - Death [Fatal]
